APPROVED DRUG PRODUCT: PHYTONADIONE
Active Ingredient: PHYTONADIONE
Strength: 10MG/ML
Dosage Form/Route: INJECTABLE;INJECTION
Application: A207719 | Product #001 | TE Code: AB1
Applicant: DR REDDYS LABORATORIES LTD
Approved: May 22, 2019 | RLD: No | RS: No | Type: RX